FAERS Safety Report 10369037 (Version 1)
Quarter: 2014Q3

REPORT INFORMATION
  Report Type: Report from Study
  Country: PH (occurrence: PH)
  Receive Date: 20140807
  Receipt Date: 20140807
  Transmission Date: 20150326
  Serious: Yes (Hospitalization)
  Sender: FDA-Public Use
  Company Number: PH-OTSUKA-JP-2014-16191

PATIENT
  Age: 62 Year
  Sex: Male

DRUGS (16)
  1. LORELCO [Suspect]
     Active Substance: PROBUCOL
     Indication: CEREBRAL INFARCTION
     Dosage: 250 MG MILLIGRAM(S), BID
     Route: 048
     Dates: start: 20140406, end: 20140519
  2. METOPROLOL TARTRATE. [Concomitant]
     Active Substance: METOPROLOL TARTRATE
     Dosage: 0.5 DF DOSAGE FORM, BID
     Dates: start: 20090307
  3. PIOGLITAZONE HYDROCHLORIDE. [Concomitant]
     Active Substance: PIOGLITAZONE HYDROCHLORIDE
     Dosage: 15 MG MILLIGRAM(S), QD
     Dates: start: 201308
  4. BETAHISTINE DIHYDROCHLORIDE [Concomitant]
     Active Substance: BETAHISTINE
     Dosage: UNK
     Dates: start: 20140313
  5. SIMVASTATIN. [Concomitant]
     Active Substance: SIMVASTATIN
     Dosage: 20 MG MILLIGRAM(S), QD
     Dates: start: 20140313
  6. PHYSIOGEL [Concomitant]
  7. ITERAX [Concomitant]
     Active Substance: HYDROXYZINE HYDROCHLORIDE
     Dosage: 25 MG MILLIGRAM(S), BID
  8. AMLODIPINE [Concomitant]
     Active Substance: AMLODIPINE BESYLATE
     Dosage: UNK
     Dates: start: 20090307
  9. PANTOPRAZOLE SODIUM [Concomitant]
     Active Substance: PANTOPRAZOLE SODIUM
     Dosage: 40 MG MILLIGRAM(S), QD
     Dates: start: 20140403
  10. BLINDED ASPIRIN [Suspect]
     Active Substance: ASPIRIN
     Indication: CEREBRAL INFARCTION
     Dosage: UNK
     Route: 048
     Dates: start: 20140406, end: 20140519
  11. BLINDED CILOSTAZOL [Suspect]
     Active Substance: CILOSTAZOL
     Indication: CEREBRAL INFARCTION
     Dosage: UNK
     Route: 048
     Dates: start: 20140406, end: 20140519
  12. DERMOVATE [Concomitant]
     Active Substance: CLOBETASOL
     Dosage: UNK, BID
  13. BLINDED PROBUCOL [Suspect]
     Active Substance: PROBUCOL
     Indication: CEREBRAL INFARCTION
     Dosage: UNK
     Route: 048
     Dates: start: 20140406, end: 20140519
  14. MICARDIS [Concomitant]
     Active Substance: TELMISARTAN
     Dosage: 40 MG MILLIGRAM(S), QD
     Dates: start: 20090307
  15. DIPHENHYDRAMINE [Concomitant]
     Active Substance: DIPHENHYDRAMINE
     Dosage: 50 MG MILLIGRAM(S), PRN
     Route: 048
  16. PLACEBO [Suspect]
     Active Substance: UNSPECIFIED INGREDIENT
     Indication: CEREBRAL INFARCTION
     Dosage: UNK
     Route: 048
     Dates: start: 20140406, end: 20140519

REACTIONS (3)
  - Gastritis [Recovered/Resolved]
  - Oesophageal ulcer [Recovered/Resolved]
  - Dermatitis exfoliative [Recovered/Resolved]

NARRATIVE: CASE EVENT DATE: 20140414
